FAERS Safety Report 9577227 (Version 1)
Quarter: 2013Q4

REPORT INFORMATION
  Report Type: Spontaneous
  Country: US (occurrence: US)
  Receive Date: 20131001
  Receipt Date: 20131001
  Transmission Date: 20140711
  Serious: No
  Sender: FDA-Public Use
  Company Number: US-AMGEN-USASP2013007161

PATIENT
  Sex: Female
  Weight: 71.2 kg

DRUGS (7)
  1. ENBREL [Suspect]
     Indication: RHEUMATOID ARTHRITIS
     Dosage: 50 MG, QWK
     Route: 058
  2. ZOLOFT [Concomitant]
     Dosage: 25 MG, UNK
  3. METHOTREXATE [Concomitant]
     Dosage: 2.5 MG, UNK
  4. LOTREL [Concomitant]
     Dosage: 5-10 MG
  5. HYDROCHLOROTH [Concomitant]
     Dosage: 25 MG, UNK
  6. GINKGO                             /01003101/ [Concomitant]
     Dosage: 60 MG, UNK
  7. FOLIC ACID [Concomitant]
     Dosage: 1000 MUG, UNK

REACTIONS (2)
  - Influenza [Unknown]
  - Bronchopneumonia [Unknown]
